FAERS Safety Report 12505181 (Version 1)
Quarter: 2016Q2

REPORT INFORMATION
  Report Type: Spontaneous
  Country: FR (occurrence: FR)
  Receive Date: 20160628
  Receipt Date: 20160628
  Transmission Date: 20160815
  Serious: Yes (Hospitalization, Other)
  Sender: FDA-Public Use
  Company Number: FR-GLAXOSMITHKLINE-FR2016GSK090584

PATIENT
  Age: 87 Year
  Sex: Female

DRUGS (5)
  1. ECONAZOLE [Concomitant]
     Active Substance: ECONAZOLE
     Indication: ERYTHEMA
     Dosage: UNK
  2. TIAPRIDAL [Suspect]
     Active Substance: TIAPRIDE HYDROCHLORIDE
     Dosage: UNK
     Route: 048
     Dates: end: 201411
  3. LAMISIL [Suspect]
     Active Substance: TERBINAFINE HYDROCHLORIDE
     Indication: ERYTHEMA
     Dosage: UNK
     Route: 061
     Dates: start: 201410, end: 20141110
  4. LAMISIL [Suspect]
     Active Substance: TERBINAFINE HYDROCHLORIDE
     Indication: ERYTHEMA
     Dosage: UNK
     Route: 048
     Dates: start: 201410, end: 20141110
  5. SEROPLEX [Suspect]
     Active Substance: ESCITALOPRAM OXALATE
     Indication: DEPRESSION
     Dosage: UNK
     Route: 048
     Dates: end: 201411

REACTIONS (6)
  - Rash pruritic [Recovering/Resolving]
  - Rash pustular [Recovering/Resolving]
  - Pyrexia [Recovering/Resolving]
  - Toxic skin eruption [Recovering/Resolving]
  - Intentional product use issue [Unknown]
  - Rash erythematous [Recovering/Resolving]

NARRATIVE: CASE EVENT DATE: 2014
